FAERS Safety Report 10553735 (Version 1)
Quarter: 2014Q4

REPORT INFORMATION
  Report Type: Spontaneous
  Country: JP (occurrence: JP)
  Receive Date: 20141030
  Receipt Date: 20141030
  Transmission Date: 20150529
  Serious: Yes (Hospitalization)
  Sender: FDA-Public Use
  Company Number: JP-009507513-1410JPN013367

PATIENT
  Sex: Female

DRUGS (2)
  1. CALCIUM (UNSPECIFIED) [Concomitant]
     Active Substance: CALCIUM
     Dosage: COMMERCIALLY AVAILABLE WADA-CALCIUM, DIVIDED DOSE FREQUENCY UNKNOWN, 5 TABLETS A DAY
     Route: 048
  2. FOSAMAX [Suspect]
     Active Substance: ALENDRONATE SODIUM
     Dosage: DAILY DOSAGE UNKOWN
     Route: 048

REACTIONS (1)
  - Spinal fracture [Recovering/Resolving]
